FAERS Safety Report 4411920-6 (Version None)
Quarter: 2004Q3

REPORT INFORMATION
  Report Type: 
  Country: None (occurrence: None)
  Receive Date: 20040730
  Receipt Date: 20040223
  Transmission Date: 20050211
  Serious: No
  Sender: FDA-Public Use
  Company Number: US-GLAXOSMITHKLINE-A0499403A

PATIENT
  Age: 73 Year
  Sex: Male

DRUGS (2)
  1. ZANTAC [Suspect]
     Dosage: 900MG PER DAY
     Route: 048
     Dates: start: 20040218
  2. MIRALAX [Concomitant]

REACTIONS (1)
  - CONSTIPATION [None]
